FAERS Safety Report 22243700 (Version 2)
Quarter: 2023Q2

REPORT INFORMATION
  Report Type: Spontaneous
  Country: BR (occurrence: BR)
  Receive Date: 20230424
  Receipt Date: 20230602
  Transmission Date: 20230721
  Serious: No
  Sender: FDA-Public Use
  Company Number: BR-AMGEN-BRASP2023067041

PATIENT
  Sex: Female

DRUGS (1)
  1. PEGFILGRASTIM [Suspect]
     Active Substance: PEGFILGRASTIM
     Indication: Product used for unknown indication
     Dosage: UNK
     Route: 065

REACTIONS (1)
  - Device malfunction [Unknown]

NARRATIVE: CASE EVENT DATE: 20230412
